FAERS Safety Report 10211008 (Version 1)
Quarter: 2014Q2

REPORT INFORMATION
  Report Type: Spontaneous
  Country: US (occurrence: US)
  Receive Date: 20140602
  Receipt Date: 20140602
  Transmission Date: 20141212
  Serious: No
  Sender: FDA-Public Use
  Company Number: US-009507513-1405USA014822

PATIENT
  Sex: Female

DRUGS (2)
  1. NASONEX [Suspect]
     Dosage: 50 MCG/ TWO SPARYS IN EACH NOSTRIL ONCE DAILY AT NIGHT
     Route: 045
     Dates: start: 2013
  2. NASONEX [Suspect]
     Indication: SEASONAL ALLERGY
     Dosage: ONLY SEASONALLY FOR ALLERGY RELIEF
     Route: 045
     Dates: end: 2013

REACTIONS (4)
  - Drug dose omission [Unknown]
  - Drug dose omission [Unknown]
  - Product quality issue [Unknown]
  - No adverse event [Unknown]
